FAERS Safety Report 21230253 (Version 4)
Quarter: 2022Q4

REPORT INFORMATION
  Report Type: Report from Study
  Country: CN (occurrence: CN)
  Receive Date: 20220818
  Receipt Date: 20221122
  Transmission Date: 20230113
  Serious: Yes (Hospitalization)
  Sender: FDA-Public Use
  Company Number: CN-JNJFOC-20220810797

PATIENT
  Age: 54 Year
  Sex: Female
  Weight: 68.1 kg

DRUGS (18)
  1. AMIVANTAMAB [Suspect]
     Active Substance: AMIVANTAMAB
     Indication: Non-small cell lung cancer
     Dosage: VD D1
     Route: 065
     Dates: start: 20220726
  2. AMIVANTAMAB [Suspect]
     Active Substance: AMIVANTAMAB
     Dosage: VD D2
     Route: 065
     Dates: start: 20220727
  3. CARBOPLATIN [Suspect]
     Active Substance: CARBOPLATIN
     Indication: Non-small cell lung cancer
     Dosage: VD D1, MOST RECENT DOSE RECEIVED 26-JUL-2022
     Route: 065
     Dates: start: 20220726
  4. PEMETREXED [Suspect]
     Active Substance: PEMETREXED
     Indication: Non-small cell lung cancer
     Dosage: VD D1
     Route: 065
     Dates: start: 20220726
  5. FOLIC ACID [Concomitant]
     Active Substance: FOLIC ACID
     Indication: Prophylaxis
     Route: 048
     Dates: start: 20220713
  6. ZUDAN [Concomitant]
     Indication: Prophylaxis of nausea and vomiting
     Route: 048
     Dates: start: 20220726, end: 20220728
  7. ZUDAN [Concomitant]
     Indication: Prophylaxis of nausea and vomiting
     Route: 048
     Dates: start: 20220728
  8. ELECTROLYTES NOS [Concomitant]
     Active Substance: ELECTROLYTES NOS
     Indication: Electrolyte substitution therapy
     Route: 042
     Dates: start: 20220727, end: 20220727
  9. ELECTROLYTES NOS [Concomitant]
     Active Substance: ELECTROLYTES NOS
     Route: 042
     Dates: start: 20220802, end: 20220802
  10. MAGNESIUM SULFATE [Concomitant]
     Active Substance: MAGNESIUM SULFATE
     Indication: Rash
     Route: 062
     Dates: start: 20220804, end: 20220804
  11. MAGNESIUM SULFATE [Concomitant]
     Active Substance: MAGNESIUM SULFATE
     Indication: Rash
     Route: 062
     Dates: start: 20220805, end: 20220805
  12. MAGNESIUM SULFATE [Concomitant]
     Active Substance: MAGNESIUM SULFATE
     Route: 062
     Dates: start: 20220806, end: 20220806
  13. COMPOUND VITAMIN B [PYRIDOXINE HYDROCHLORIDE;RIBOFLAVIN;THIAMINE HYDRO [Concomitant]
     Indication: Vitamin supplementation
     Route: 048
     Dates: start: 20220804, end: 20220812
  14. DEXAMETHASONE [Concomitant]
     Active Substance: DEXAMETHASONE
     Indication: Prophylaxis
     Route: 042
     Dates: start: 20220805, end: 20220806
  15. DEXAMETHASONE [Concomitant]
     Active Substance: DEXAMETHASONE
     Route: 042
     Dates: start: 20220806, end: 20220808
  16. ESOMEPRAZOLE SODIUM [Concomitant]
     Active Substance: ESOMEPRAZOLE SODIUM
     Indication: Gastrointestinal disorder therapy
     Route: 042
     Dates: start: 20220805, end: 20220808
  17. TRANEXAMIC ACID [Concomitant]
     Active Substance: TRANEXAMIC ACID
     Indication: Haemorrhage prophylaxis
     Route: 042
     Dates: start: 20220806, end: 20220806
  18. LACTULOSE [Concomitant]
     Active Substance: LACTULOSE
     Indication: Constipation
     Route: 048
     Dates: start: 20220806, end: 20220806

REACTIONS (3)
  - Thrombocytopenia [Recovered/Resolved]
  - Neutropenia [Recovered/Resolved]
  - Leukopenia [Recovered/Resolved]

NARRATIVE: CASE EVENT DATE: 20220802
